FAERS Safety Report 6886041-3 (Version None)
Quarter: 2010Q3

REPORT INFORMATION
  Report Type: 
  Country: None (occurrence: None)
  Receive Date: 20100729
  Receipt Date: 20080527
  Transmission Date: 20110219
  Serious: Yes (Hospitalization, Other)
  Sender: FDA-Public Use
  Company Number: US-PFIZER INC-2007058472

PATIENT
  Sex: Male
  Weight: 145.2 kg

DRUGS (5)
  1. CELEBREX [Suspect]
     Indication: ARTHRITIS
  2. ASPIRIN [Concomitant]
  3. DARVOCET-N 100 [Concomitant]
  4. PERCOCET [Concomitant]
  5. ULTRAM [Concomitant]

REACTIONS (1)
  - MYOCARDIAL INFARCTION [None]
